FAERS Safety Report 21891174 (Version 1)
Quarter: 2023Q1

REPORT INFORMATION
  Report Type: Report from Study
  Country: DE (occurrence: DE)
  Receive Date: 20230120
  Receipt Date: 20230120
  Transmission Date: 20230418
  Serious: Yes (Other)
  Sender: FDA-Public Use
  Company Number: DE-MYLANLABS-2023M1006814

PATIENT
  Sex: Male
  Weight: 3.5 kg

DRUGS (3)
  1. DEXMEDETOMIDINE [Suspect]
     Active Substance: DEXMEDETOMIDINE
     Indication: Sedative therapy
     Dosage: 0.3 MICROGRAM/KILOGRAM (INTRAVENOUS BOLUS)
     Route: 042
  2. DEXMEDETOMIDINE [Suspect]
     Active Substance: DEXMEDETOMIDINE
     Dosage: 3.5 MICROGRAM/KILOGRAM, QH (INTRAVENOUS INFUSION)
     Route: 042
  3. PROPOFOL [Suspect]
     Active Substance: PROPOFOL
     Indication: Sedative therapy
     Dosage: UNK (THE PATIENT RECEIVED PROPOFOL BOLUS)
     Route: 042

REACTIONS (2)
  - Bradycardia neonatal [Recovered/Resolved]
  - Off label use [Unknown]
